FAERS Safety Report 15343064 (Version 2)
Quarter: 2018Q4

REPORT INFORMATION
  Report Type: Report from Study
  Country: US (occurrence: US)
  Receive Date: 20180903
  Receipt Date: 20181010
  Transmission Date: 20190204
  Serious: Yes (Other)
  Sender: FDA-Public Use
  Company Number: US-AUROBINDO-AUR-APL-2018-043577

PATIENT
  Age: 35 Year
  Sex: Female

DRUGS (2)
  1. DEXAMETHASONE INJECTION [Suspect]
     Active Substance: DEXAMETHASONE
     Indication: ACUTE ZONAL OCCULT OUTER RETINOPATHY
  2. PREDNISONE. [Suspect]
     Active Substance: PREDNISONE
     Indication: ACUTE ZONAL OCCULT OUTER RETINOPATHY
     Dosage: 60 MILLIGRAM AT 1 MONTH
     Route: 065

REACTIONS (4)
  - Condition aggravated [Recovered/Resolved]
  - Ocular hypertension [Recovered/Resolved]
  - Cataract [Recovered/Resolved]
  - Acute zonal occult outer retinopathy [Recovered/Resolved]
